FAERS Safety Report 20269155 (Version 1)
Quarter: 2022Q1

REPORT INFORMATION
  Report Type: Spontaneous
  Country: US (occurrence: US)
  Receive Date: 20220101
  Receipt Date: 20220101
  Transmission Date: 20220423
  Serious: No
  Sender: FDA-Public Use
  Company Number: US-COOPERSURGICAL, INC.-US-2021CPS001384

PATIENT
  Sex: Female
  Weight: 72.562 kg

DRUGS (5)
  1. PARAGARD T 380A [Suspect]
     Active Substance: COPPER
     Indication: Contraception
     Dosage: UNK
     Route: 015
     Dates: start: 20141107
  2. TAMOXIFEN [Concomitant]
     Active Substance: TAMOXIFEN
     Indication: Breast cancer
     Route: 065
  3. TURMERIC                           /01079601/ [Concomitant]
     Indication: Nutritional supplementation
     Route: 065
  4. VITAMIN D                          /00107901/ [Concomitant]
     Indication: Supplementation therapy
     Route: 065
  5. VITAMIN C                          /00008001/ [Concomitant]
     Indication: Product used for unknown indication
     Route: 065

REACTIONS (7)
  - Dysmenorrhoea [Unknown]
  - Muscle spasms [Unknown]
  - Heavy menstrual bleeding [Unknown]
  - Abnormal uterine bleeding [Unknown]
  - Device expulsion [Recovered/Resolved]
  - Stress [Unknown]
  - Economic problem [Unknown]

NARRATIVE: CASE EVENT DATE: 20200101
